FAERS Safety Report 6747271-4 (Version None)
Quarter: 2010Q2

REPORT INFORMATION
  Report Type: 
  Country: None (occurrence: None)
  Receive Date: 20100528
  Receipt Date: 20100519
  Transmission Date: 20101027
  Serious: Yes (Hospitalization)
  Sender: FDA-Public Use
  Company Number: A0833411A

PATIENT
  Sex: Male
  Weight: 100 kg

DRUGS (1)
  1. AVANDIA [Suspect]
     Route: 048
     Dates: start: 19990101, end: 20020101

REACTIONS (5)
  - AORTIC ANEURYSM REPAIR [None]
  - ARRHYTHMIA [None]
  - CARDIAC DISORDER [None]
  - THROMBOSIS [None]
  - TRANSIENT ISCHAEMIC ATTACK [None]
